FAERS Safety Report 9865667 (Version 2)
Quarter: 2014Q1

REPORT INFORMATION
  Report Type: Spontaneous
  Country: US (occurrence: US)
  Receive Date: 20140203
  Receipt Date: 20140203
  Transmission Date: 20141002
  Serious: No
  Sender: FDA-Public Use
  Company Number: US-ALLERGAN-1307329US

PATIENT
  Sex: Female

DRUGS (4)
  1. RESTASIS [Suspect]
     Indication: DRY EYE
     Dosage: 1 GTT, BID
     Route: 047
     Dates: start: 2011
  2. REFRESH                            /01282201/ [Concomitant]
     Indication: DRY EYE
     Dosage: UNK UNK, PRN
  3. REFRESH OINTMENT [Concomitant]
     Indication: DRY EYE
     Dosage: UNK, QHS
  4. EYE DROPS NOS [Suspect]
     Indication: OPHTHALMOLOGICAL EXAMINATION

REACTIONS (5)
  - Foreign body sensation in eyes [Unknown]
  - Drug ineffective [Unknown]
  - Eye pain [Unknown]
  - Photophobia [Unknown]
  - Vision blurred [Unknown]
